FAERS Safety Report 10032848 (Version 1)
Quarter: 2014Q1

REPORT INFORMATION
  Report Type: Spontaneous
  Country: AT (occurrence: AT)
  Receive Date: 20140324
  Receipt Date: 20140324
  Transmission Date: 20141002
  Serious: Yes (Other)
  Sender: FDA-Public Use
  Company Number: AT-WATSON-2014-05102

PATIENT
  Age: 48 Year
  Sex: Male
  Weight: 102.5 kg

DRUGS (31)
  1. DOXAZOSIN (UNKNOWN) [Suspect]
     Indication: PRODUCT USED FOR UNKNOWN INDICATION
     Dosage: 4 MG, DAILY
     Route: 065
     Dates: start: 20130910, end: 20130929
  2. DOXAZOSIN (UNKNOWN) [Suspect]
     Dosage: 8 MG, DAILY
     Route: 065
     Dates: start: 20130930
  3. LYRICA [Suspect]
     Indication: PRODUCT USED FOR UNKNOWN INDICATION
     Dosage: 125 MG, DAILY
     Route: 065
     Dates: start: 201307, end: 20130904
  4. LYRICA [Suspect]
     Dosage: 300 MG, DAILY
     Route: 065
     Dates: start: 20130905, end: 20130908
  5. LYRICA [Suspect]
     Dosage: 375 MG, DAILY
     Route: 065
     Dates: start: 20130909, end: 20130909
  6. LYRICA [Suspect]
     Dosage: 450 MG, DAILY
     Route: 065
     Dates: start: 20130910
  7. MIRTABENE [Suspect]
     Indication: PRODUCT USED FOR UNKNOWN INDICATION
     Dosage: 90 MG, DAILY
     Route: 065
     Dates: start: 20130905, end: 20130924
  8. MIRTABENE [Suspect]
     Dosage: 60 MG, DAILY
     Route: 065
     Dates: start: 20130925, end: 20131007
  9. MIRTABENE [Suspect]
     Dosage: 30 MG, DAILY
     Route: 065
     Dates: start: 20131008, end: 20131013
  10. MIRTABENE [Suspect]
     Dosage: 45 MG, DAILY
     Route: 065
     Dates: end: 20130904
  11. CIPRALEX [Suspect]
     Indication: PRODUCT USED FOR UNKNOWN INDICATION
     Dosage: 5 MG, DAILY
     Route: 065
     Dates: start: 20130906, end: 20130909
  12. CIPRALEX [Suspect]
     Dosage: 10 MG, DAILY
     Route: 065
     Dates: start: 20130910, end: 20130910
  13. CIPRALEX [Suspect]
     Dosage: 20 MG, DAILY
     Route: 065
     Dates: start: 20130911, end: 20130925
  14. CIPRALEX [Suspect]
     Dosage: 30 MG, DAILY
     Route: 065
     Dates: start: 20130926
  15. RISPERDAL [Suspect]
     Indication: PRODUCT USED FOR UNKNOWN INDICATION
     Dosage: 1 MG, DAILY
     Route: 048
     Dates: start: 20130916, end: 20130924
  16. RISPERDAL [Suspect]
     Dosage: 2 MG, DAILY
     Route: 048
     Dates: start: 20130925
  17. SERTRALINE [Concomitant]
     Indication: PRODUCT USED FOR UNKNOWN INDICATION
     Dosage: 150 MG, DAILY
     Route: 065
     Dates: start: 201308, end: 20130908
  18. SERTRALINE [Concomitant]
     Dosage: 100 MG, DAILY
     Route: 065
     Dates: start: 20130909, end: 20130910
  19. LAMICTAL [Concomitant]
     Indication: PRODUCT USED FOR UNKNOWN INDICATION
     Dosage: 50 MG, DAILY
     Route: 065
     Dates: start: 201308, end: 20130917
  20. LAMICTAL [Concomitant]
     Dosage: 75 MG, DAILY
     Route: 065
     Dates: start: 20130918, end: 20130922
  21. LAMICTAL [Concomitant]
     Dosage: 100 MG, DAILY
     Route: 065
     Dates: start: 20130923, end: 20131001
  22. LAMICTAL [Concomitant]
     Dosage: 200 MG, DAILY
     Route: 065
     Dates: start: 20131002
  23. RIVOTRIL [Concomitant]
     Indication: PRODUCT USED FOR UNKNOWN INDICATION
     Dosage: 1.5 MG, DAILY
     Route: 065
     Dates: start: 20130905
  24. EXFORGE [Concomitant]
     Indication: PRODUCT USED FOR UNKNOWN INDICATION
     Dosage: 10/160 MG, DAILY
     Route: 065
     Dates: start: 20130910
  25. EXFORGE [Concomitant]
     Dosage: 5/160 MG, DAILY
     Route: 065
     Dates: end: 20130909
  26. FOLSAN [Concomitant]
     Indication: PRODUCT USED FOR UNKNOWN INDICATION
     Dosage: 5 MG, DAILY
     Route: 065
     Dates: start: 20130910
  27. FOLSAN [Concomitant]
     Dosage: 10 MG, DAILY
     Route: 065
     Dates: end: 20130909
  28. FUNGORAL [Concomitant]
     Indication: PRODUCT USED FOR UNKNOWN INDICATION
     Dosage: 1 DF, 3/WEEK [SHAMPOO]
     Route: 061
     Dates: start: 20130918, end: 20131013
  29. FUNGORAL [Concomitant]
     Dosage: 1 DF, 3/WEEK [CREAM]
     Route: 061
     Dates: start: 20130918, end: 20131013
  30. EBRANTIL                           /00631801/ [Concomitant]
     Indication: PRODUCT USED FOR UNKNOWN INDICATION
     Dosage: 60 MG, DAILY
     Route: 065
     Dates: end: 20130909
  31. NOMEXOR [Concomitant]
     Indication: PRODUCT USED FOR UNKNOWN INDICATION
     Dosage: 10 MG, DAILY
     Route: 065

REACTIONS (1)
  - Weight increased [Not Recovered/Not Resolved]
